FAERS Safety Report 15000203 (Version 1)
Quarter: 2018Q2

REPORT INFORMATION
  Report Type: Spontaneous
  Country: DE (occurrence: DE)
  Receive Date: 20180612
  Receipt Date: 20180612
  Transmission Date: 20180711
  Serious: Yes (Hospitalization, Other)
  Sender: FDA-Public Use
  Company Number: DE-TORRENT-00006419

PATIENT
  Age: 27 Year
  Sex: Female

DRUGS (4)
  1. LEVETIRACETAM. [Concomitant]
     Active Substance: LEVETIRACETAM
     Indication: SEIZURE
     Dosage: MAX. 3000  MG/D
  2. BRIVARACETAM [Suspect]
     Active Substance: BRIVARACETAM
     Indication: SEIZURE
     Dosage: MAX. 200 MG/D
  3. CARBAMAZEPIN [Interacting]
     Active Substance: CARBAMAZEPINE
     Indication: SEIZURE
  4. LAMOTRIGINE. [Suspect]
     Active Substance: LAMOTRIGINE
     Indication: SEIZURE
     Dosage: MAX.  400  MG/ D

REACTIONS (5)
  - Rash [Unknown]
  - Hypersensitivity [Unknown]
  - Drug interaction [Unknown]
  - Rash maculo-papular [Unknown]
  - Anticonvulsant drug level increased [Unknown]
